FAERS Safety Report 5216115-4 (Version None)
Quarter: 2007Q1

REPORT INFORMATION
  Report Type: 
  Country: None (occurrence: None)
  Receive Date: 20070123
  Receipt Date: 20070111
  Transmission Date: 20070707
  Serious: Yes (Other)
  Sender: FDA-Public Use
  Company Number: US-PFIZER INC-2007004360

PATIENT
  Sex: Female
  Weight: 54.9 kg

DRUGS (3)
  1. LYRICA [Suspect]
     Indication: CONVULSION
  2. TRILEPTAL [Suspect]
     Indication: CONVULSION
  3. FOSAMAX [Concomitant]

REACTIONS (2)
  - GRAND MAL CONVULSION [None]
  - HYPERTHYROIDISM [None]
